FAERS Safety Report 8289572-7 (Version None)
Quarter: 2012Q2

REPORT INFORMATION
  Report Type: 
  Country: None (occurrence: None)
  Receive Date: 20120417
  Receipt Date: 20120412
  Transmission Date: 20120825
  Serious: Yes (Hospitalization)
  Sender: FDA-Public Use
  Company Number: PHEH2012US007589

PATIENT
  Sex: Female
  Weight: 77.7 kg

DRUGS (8)
  1. HYDROCHLOROTHIAZIDE [Concomitant]
     Dosage: HCTZ 12.5 MG, LISINOPRIL 10MG, QD
     Route: 048
  2. LEVOXYL [Concomitant]
     Dosage: 125 MG, QD
  3. FLUCONAZOLE [Concomitant]
  4. VITAMIN D [Concomitant]
     Dosage: 2 DF, QD
     Route: 048
  5. GILENYA [Suspect]
     Dosage: 0.5 MG, QD
     Route: 048
     Dates: start: 20120402
  6. PAROXETINE HCL [Concomitant]
     Dosage: 30 MG, BID
  7. AMBIEN [Concomitant]
     Dosage: 0.5 DF, QHS
     Route: 048
  8. GILENYA [Suspect]
     Indication: MULTIPLE SCLEROSIS
     Dosage: 0.5 MG, QD
     Route: 048
     Dates: start: 20120223, end: 20120331

REACTIONS (1)
  - CHOLECYSTITIS [None]
